FAERS Safety Report 8848819 (Version 2)
Quarter: 2012Q4

REPORT INFORMATION
  Report Type: 
  Country: US (occurrence: US)
  Receive Date: 20121109
  Receipt Date: 20121109
  Transmission Date: 20130627
  Serious: Yes (Other)
  Sender: FDA-Public Use
  Company Number: 2012P1060511

PATIENT
  Age: 78 Year
  Sex: Female
  Weight: 79.38 kg

DRUGS (12)
  1. TERCONAZOLE VAGINAL CREAM 0.8% [Suspect]
     Indication: VULVOVAGINAL MYCOTIC INFECTION
     Route: 067
     Dates: start: 20120718
  2. DEXILANT 60 MG [Concomitant]
  3. PLAVIX 75 MG [Concomitant]
  4. FUROSEMIDE 40 MG [Concomitant]
  5. LIPITOR 40 MG [Concomitant]
  6. COZAAR 100 MG [Concomitant]
  7. AMBIEN [Concomitant]
  8. VITAMIN B COMPLEX [Concomitant]
  9. MULTI VITAMIN [Concomitant]
  10. ALIGN PROBIOTIC [Concomitant]
  11. OCULAR EYE PROTECT WHOLE BODY FORMULA [Concomitant]
  12. VITAMIN D [Concomitant]

REACTIONS (2)
  - Drug ineffective [Not Recovered/Not Resolved]
  - Basal cell carcinoma [Recovering/Resolving]
